FAERS Safety Report 9352133 (Version 1)
Quarter: 2013Q2

REPORT INFORMATION
  Report Type: Spontaneous
  Country: US (occurrence: US)
  Receive Date: 20130617
  Receipt Date: 20130617
  Transmission Date: 20140414
  Serious: No
  Sender: FDA-Public Use
  Company Number: US-009507513-1306USA005923

PATIENT
  Sex: Male

DRUGS (1)
  1. AFRIN [Suspect]
     Indication: DYSPNOEA
     Dosage: UNK, QD
     Route: 048

REACTIONS (4)
  - Drug dependence [Unknown]
  - Rebound effect [Unknown]
  - Incorrect drug administration duration [Unknown]
  - Product container issue [Unknown]
